FAERS Safety Report 14962356 (Version 1)
Quarter: 2018Q2

REPORT INFORMATION
  Report Type: Report from Study
  Country: DE (occurrence: DE)
  Receive Date: 20180601
  Receipt Date: 20180601
  Transmission Date: 20180711
  Serious: Yes (Other)
  Sender: FDA-Public Use
  Company Number: DE-ACCORD-067539

PATIENT
  Age: 2 Month
  Weight: 4.2 kg

DRUGS (3)
  1. METHOTREXATE. [Suspect]
     Active Substance: METHOTREXATE
     Indication: ATYPICAL TERATOID/RHABDOID TUMOUR OF CNS
  2. VINCRISTINE [Concomitant]
     Active Substance: VINCRISTINE
     Indication: ATYPICAL TERATOID/RHABDOID TUMOUR OF CNS
  3. CYCLOPHOSPHAMIDE/CYCLOPHOSPHAMIDE MONOHYDRATE [Concomitant]
     Indication: ATYPICAL TERATOID/RHABDOID TUMOUR OF CNS

REACTIONS (2)
  - Encephalomalacia [Not Recovered/Not Resolved]
  - Drug administration error [Unknown]
